FAERS Safety Report 9022467 (Version 12)
Quarter: 2015Q1

REPORT INFORMATION
  Report Type: Spontaneous
  Country: US (occurrence: US)
  Receive Date: 20130118
  Receipt Date: 20150220
  Transmission Date: 20150721
  Serious: Yes (Hospitalization, Other)
  Sender: FDA-Public Use
  Company Number: US-PFIZER INC-2013012900

PATIENT
  Age: 45 Year
  Sex: Female
  Weight: 52 kg

DRUGS (14)
  1. PRISTIQ EXTENDED RELEASE [Concomitant]
     Active Substance: DESVENLAFAXINE SUCCINATE
     Indication: DEPRESSION
     Dosage: 50 MG, 1X/DAY
  2. WELLBUTRIN [Concomitant]
     Active Substance: BUPROPION HYDROCHLORIDE
     Dosage: ^50^, 2X/DAY
  3. ELELYSO [Suspect]
     Active Substance: TALIGLUCERASE ALFA
     Dosage: 3200 UNITS, EVERY 2 WEEKS
     Route: 042
     Dates: start: 20121009, end: 201309
  4. ELELYSO [Suspect]
     Active Substance: TALIGLUCERASE ALFA
     Dosage: 3200 MG, EVERY 2WEEKS
     Route: 042
     Dates: start: 20121010, end: 20130912
  5. ZAVESCA [Suspect]
     Active Substance: MIGLUSTAT
     Dosage: UNK
  6. ESTRADIOL. [Concomitant]
     Active Substance: ESTRADIOL
     Indication: MENOPAUSE
     Dosage: 1 MG, UNK
  7. ELELYSO [Suspect]
     Active Substance: TALIGLUCERASE ALFA
     Dosage: 60 UNITS/KG, 3200 UNITS, EVERY 2 WEEKS
     Route: 042
     Dates: start: 201301
  8. LOSARTAN POTASSIUM. [Concomitant]
     Active Substance: LOSARTAN POTASSIUM
     Indication: HYPERTENSION
     Dosage: 50 MG, UNK
  9. ELELYSO [Suspect]
     Active Substance: TALIGLUCERASE ALFA
     Indication: GAUCHER^S DISEASE
     Dosage: 3200 UNITS, CYCLIC (EVERY 2 WEEKS)
     Route: 042
     Dates: start: 201209
  10. ELELYSO [Suspect]
     Active Substance: TALIGLUCERASE ALFA
     Dosage: 3200 UNITS, EVERY 2 WEEKS
     Route: 042
     Dates: start: 20121120
  11. ELELYSO [Suspect]
     Active Substance: TALIGLUCERASE ALFA
     Dosage: 3200 UNITS EVERY 2 WEEKS
     Route: 042
     Dates: start: 201210, end: 201310
  12. ELELYSO [Suspect]
     Active Substance: TALIGLUCERASE ALFA
     Indication: GAUCHER^S DISEASE
     Dosage: 3200 UNITS, CYCLIC (EVERY 2 WEEKS)
     Route: 042
     Dates: end: 201208
  13. ELELYSO [Suspect]
     Active Substance: TALIGLUCERASE ALFA
     Dosage: 3200 MG, EVERY 2 WEEKS
     Route: 042
     Dates: start: 201210, end: 201309
  14. PANTOPRAZOLE SODIUM [Concomitant]
     Active Substance: PANTOPRAZOLE SODIUM
     Indication: GASTROOESOPHAGEAL REFLUX DISEASE
     Dosage: 40 MG, UNK

REACTIONS (26)
  - Neuropathy peripheral [Not Recovered/Not Resolved]
  - Onychoclasis [Unknown]
  - Flushing [Recovered/Resolved]
  - Nausea [Unknown]
  - Irritable bowel syndrome [Recovering/Resolving]
  - Heart rate abnormal [Unknown]
  - Hyperhidrosis [Unknown]
  - Aneurysm [Not Recovered/Not Resolved]
  - Incorrect drug administration rate [Unknown]
  - Vomiting [Unknown]
  - Diarrhoea [Recovered/Resolved]
  - Hiatus hernia [Recovered/Resolved]
  - Weight increased [Not Recovered/Not Resolved]
  - Abdominal discomfort [Unknown]
  - Gastrointestinal disorder [Not Recovered/Not Resolved]
  - Gastrooesophageal reflux disease [Not Recovered/Not Resolved]
  - Abdominal pain upper [Unknown]
  - Blood potassium decreased [Unknown]
  - Constipation [Not Recovered/Not Resolved]
  - Lipase increased [Recovered/Resolved]
  - Gastroenteritis [Recovering/Resolving]
  - Pancreatitis acute [Recovering/Resolving]
  - Abdominal discomfort [Unknown]
  - Infusion related reaction [Unknown]
  - Dehydration [Recovering/Resolving]
  - Weight decreased [Unknown]

NARRATIVE: CASE EVENT DATE: 2013
